FAERS Safety Report 7747759-3 (Version None)
Quarter: 2011Q3

REPORT INFORMATION
  Report Type: 
  Country: None (occurrence: None)
  Receive Date: 20110913
  Receipt Date: 20110901
  Transmission Date: 20111222
  Serious: Yes (Hospitalization, Other)
  Sender: FDA-Public Use
  Company Number: US-ACTELION-A-NJ2011-48583

PATIENT

DRUGS (2)
  1. TRACLEER [Suspect]
     Indication: PULMONARY ARTERIAL HYPERTENSION
     Dosage: 125 MG, BID
     Route: 048
     Dates: start: 20110317, end: 20110814
  2. REVATIO [Concomitant]

REACTIONS (8)
  - BACK PAIN [None]
  - INTERSTITIAL LUNG DISEASE [None]
  - CARDIAC FAILURE CONGESTIVE [None]
  - DYSPNOEA [None]
  - GAIT DISTURBANCE [None]
  - CONCOMITANT DISEASE AGGRAVATED [None]
  - RENAL FAILURE [None]
  - URINARY TRACT INFECTION [None]
